FAERS Safety Report 9042349 (Version 1)
Quarter: 2013Q1

REPORT INFORMATION
  Report Type: Report from Study
  Country: US (occurrence: US)
  Receive Date: 20130129
  Receipt Date: 20130129
  Transmission Date: 20140127
  Serious: No
  Sender: FDA-Public Use
  Company Number: US-ABBOTT-12P-163-0908606-00

PATIENT
  Age: 38 Year
  Sex: Female

DRUGS (16)
  1. HUMIRA 40 MG/ 0.8 ML PRE-FILLED SYRINGE [Suspect]
     Indication: CROHN^S DISEASE
     Dosage: WEEKLY
     Route: 058
     Dates: start: 201011
  2. HUMIRA 40 MG/ 0.8 ML PRE-FILLED SYRINGE [Suspect]
     Route: 058
     Dates: end: 20111120
  3. HUMIRA 40 MG/ 0.8 ML PRE-FILLED SYRINGE [Suspect]
     Route: 058
     Dates: start: 20111120, end: 20120209
  4. DEXILANT [Concomitant]
     Indication: HIATUS HERNIA
     Dosage: DAILY
  5. NIGHT MEDICATION [Concomitant]
     Indication: GASTROOESOPHAGEAL REFLUX DISEASE
  6. BALSALAZIDE [Concomitant]
     Indication: PRODUCT USED FOR UNKNOWN INDICATION
     Dosage: DAILY
  7. TOPIRAMATE [Concomitant]
     Indication: MIGRAINE
     Dosage: DAILY
  8. AXERT [Concomitant]
     Indication: MIGRAINE
  9. TIROSINT [Concomitant]
     Indication: THYROID DISORDER
     Dosage: DAILY
  10. SEASONIQUE [Concomitant]
     Indication: CONTRACEPTION
  11. VITAMINS [Concomitant]
     Indication: PRODUCT USED FOR UNKNOWN INDICATION
     Dosage: DAILY
  12. SUPPLEMENTS [Concomitant]
     Indication: PRODUCT USED FOR UNKNOWN INDICATION
     Dosage: DAILY
  13. PROBIOTICS [Concomitant]
     Indication: PRODUCT USED FOR UNKNOWN INDICATION
     Dosage: DAILY
  14. ONDANSETRON [Concomitant]
     Indication: NAUSEA
  15. TYLENOL WITH CODEINE [Concomitant]
     Indication: PAIN
  16. HYDROCODONE [Concomitant]
     Indication: ARTHRALGIA

REACTIONS (5)
  - Haematochezia [Not Recovered/Not Resolved]
  - Bowel movement irregularity [Not Recovered/Not Resolved]
  - Migraine [Unknown]
  - Nausea [Unknown]
  - Frequent bowel movements [Unknown]
